FAERS Safety Report 5017709-1 (Version None)
Quarter: 2006Q2

REPORT INFORMATION
  Report Type: 
  Country: None (occurrence: None)
  Receive Date: 20060605
  Receipt Date: 20060522
  Transmission Date: 20061013
  Serious: Yes (Death, Other)
  Sender: FDA-Public Use
  Company Number: US-JNJFOC-20060505985

PATIENT
  Age: 64 Year
  Sex: Male

DRUGS (4)
  1. REOPRO [Suspect]
     Indication: PERCUTANEOUS CORONARY INTERVENTION
     Dosage: 1 BOLUS
     Route: 042
  2. HEPARIN [Concomitant]
  3. CLOPIDOGREL [Concomitant]
  4. ACETYLSALICYLIC ACID SRT [Concomitant]

REACTIONS (2)
  - CARDIOGENIC SHOCK [None]
  - PUNCTURE SITE HAEMORRHAGE [None]
